FAERS Safety Report 4881597-4 (Version None)
Quarter: 2005Q4

REPORT INFORMATION
  Report Type: 
  Country: None (occurrence: None)
  Receive Date: 20051201
  Receipt Date: 20050928
  Transmission Date: 20060501
  Serious: No
  Sender: FDA-Public Use
  Company Number: 2005PV002608

PATIENT
  Age: 57 Year
  Sex: Female
  Weight: 147.419 kg

DRUGS (6)
  1. BYETTA [Suspect]
     Indication: DIABETES MELLITUS NON-INSULIN-DEPENDENT
     Dosage: 5 MCG;BID;SC
     Route: 058
     Dates: start: 20050924, end: 20050928
  2. LANTUS [Concomitant]
  3. AMARYL [Concomitant]
  4. BLOOD PRESSURE [Concomitant]
  5. MEDICATION [Concomitant]
  6. LANTUS [Concomitant]

REACTIONS (4)
  - BLOOD GLUCOSE INCREASED [None]
  - DECREASED APPETITE [None]
  - DRUG INEFFECTIVE [None]
  - EARLY SATIETY [None]
